FAERS Safety Report 7125007-5 (Version None)
Quarter: 2010Q4

REPORT INFORMATION
  Report Type: 
  Country: None (occurrence: None)
  Receive Date: 20101129
  Receipt Date: 20101117
  Transmission Date: 20110411
  Serious: Yes (Hospitalization)
  Sender: FDA-Public Use
  Company Number: US-SANOFI-AVENTIS-2010SA070754

PATIENT
  Age: 60 Year
  Sex: Male
  Weight: 97 kg

DRUGS (15)
  1. AMARYL [Suspect]
     Dosage: (2) 4 MG TABS ONCE A DAY
     Route: 048
     Dates: start: 20090202
  2. INVESTIGATIONAL DRUG [Suspect]
     Dates: start: 20100201
  3. NABUMETONE [Concomitant]
     Indication: ARTHRITIS
     Route: 048
     Dates: start: 20080501
  4. OMEPRAZOLE [Concomitant]
     Route: 048
     Dates: start: 20060101
  5. VENLAFAXINE [Concomitant]
     Indication: DEPRESSION
     Route: 048
     Dates: start: 20070101
  6. PROMETHAZINE [Concomitant]
     Indication: NAUSEA
     Route: 048
     Dates: start: 20090701
  7. GLIPIZIDE [Concomitant]
     Route: 048
     Dates: start: 20040101, end: 20091202
  8. FLEXERIL [Concomitant]
     Indication: BACK PAIN
     Dosage: 1 QD PRN
     Route: 048
     Dates: start: 20040101
  9. NITROSTAT [Concomitant]
     Indication: ILL-DEFINED DISORDER
     Route: 048
     Dates: start: 20080701
  10. METOPROLOL [Concomitant]
     Route: 048
     Dates: start: 20080701
  11. PRAVASTATIN [Concomitant]
     Route: 048
     Dates: start: 20080701
  12. FENOFIBRATE [Concomitant]
     Route: 048
     Dates: start: 20080701
  13. ASPIRIN [Concomitant]
     Indication: PROPHYLAXIS
     Route: 048
     Dates: start: 20080701
  14. AMBIEN [Concomitant]
     Indication: INSOMNIA
     Route: 048
     Dates: start: 20000101
  15. FLUTICASONE PROPIONATE [Concomitant]
     Indication: SEASONAL ALLERGY
     Route: 045
     Dates: start: 20090101

REACTIONS (1)
  - CHEST PAIN [None]
